FAERS Safety Report 14755449 (Version 1)
Quarter: 2018Q2

REPORT INFORMATION
  Report Type: Spontaneous
  Country: BR (occurrence: BR)
  Receive Date: 20180413
  Receipt Date: 20180413
  Transmission Date: 20180711
  Serious: Yes (Other)
  Sender: FDA-Public Use
  Company Number: BR-ABBVIE-18K-020-2320011-00

PATIENT
  Age: 60 Year
  Sex: Female
  Weight: 75 kg

DRUGS (8)
  1. ENDOFOLIN [Concomitant]
     Active Substance: FOLIC ACID
     Indication: ANAEMIA
     Route: 048
     Dates: start: 2002
  2. HUMIRA [Suspect]
     Active Substance: ADALIMUMAB
     Indication: RHEUMATIC DISORDER
     Route: 058
     Dates: end: 201803
  3. ADVIL [Concomitant]
     Active Substance: IBUPROFEN
     Indication: HEADACHE
     Dosage: 1 OR 2
     Route: 048
     Dates: start: 2016
  4. ENXAK [Concomitant]
     Active Substance: ERGOTAMINE TARTRATE
     Indication: HEADACHE
     Route: 048
  5. TECNOMET [Concomitant]
     Active Substance: METHOTREXATE
     Indication: RHEUMATIC DISORDER
     Dosage: 3 TABLETS IN THE MORNING AND 2 TABLETS AT NIGHT ON THURSDAYS
     Route: 048
     Dates: start: 2002
  6. ENDOFOLIN [Concomitant]
     Active Substance: FOLIC ACID
     Indication: HYPOVITAMINOSIS
  7. ATENOLOL. [Concomitant]
     Active Substance: ATENOLOL
     Indication: HYPERTENSION
     Dates: start: 2014
  8. LOSARTAN. [Concomitant]
     Active Substance: LOSARTAN
     Indication: HYPERTENSION
     Route: 048
     Dates: start: 2014

REACTIONS (16)
  - Chest discomfort [Unknown]
  - Immunodeficiency [Not Recovered/Not Resolved]
  - Muscular weakness [Unknown]
  - Asthenia [Recovered/Resolved]
  - Pain in extremity [Recovering/Resolving]
  - Syncope [Recovered/Resolved]
  - Hypersensitivity [Not Recovered/Not Resolved]
  - Cough [Not Recovered/Not Resolved]
  - Headache [Recovered/Resolved]
  - Suffocation feeling [Unknown]
  - Alopecia [Recovering/Resolving]
  - Asthenia [Not Recovered/Not Resolved]
  - Speech disorder [Not Recovered/Not Resolved]
  - Influenza like illness [Unknown]
  - Hypertension [Recovered/Resolved]
  - Dysphonia [Not Recovered/Not Resolved]

NARRATIVE: CASE EVENT DATE: 201702
